FAERS Safety Report 9133750 (Version 2)
Quarter: 2013Q1

REPORT INFORMATION
  Report Type: Report from Study
  Country: US (occurrence: US)
  Receive Date: 20130302
  Receipt Date: 20130325
  Transmission Date: 20140127
  Serious: Yes (Hospitalization)
  Sender: FDA-Public Use
  Company Number: US-US-EMD SERONO, INC.-7196081

PATIENT
  Sex: Female

DRUGS (1)
  1. REBIF [Suspect]
     Indication: PRODUCT USED FOR UNKNOWN INDICATION
     Route: 058
     Dates: start: 20121220

REACTIONS (6)
  - Strabismus [Unknown]
  - Eye movement disorder [Unknown]
  - Dizziness [Unknown]
  - Nausea [Unknown]
  - Pain [Recovered/Resolved]
  - Headache [Recovered/Resolved]
